FAERS Safety Report 16387909 (Version 7)
Quarter: 2019Q3

REPORT INFORMATION
  Report Type: Spontaneous
  Country: US (occurrence: US)
  Receive Date: 20190604
  Receipt Date: 20190821
  Transmission Date: 20191004
  Serious: No
  Sender: FDA-Public Use
  Company Number: US-GLAXOSMITHKLINE-US2019098831

PATIENT
  Age: 45 Year
  Sex: Male

DRUGS (6)
  1. EXCEDRIN [Suspect]
     Active Substance: ACETAMINOPHEN\ASPIRIN\CAFFEINE
     Indication: HEADACHE
     Dosage: UNK
  2. EXCEDRIN [Suspect]
     Active Substance: ACETAMINOPHEN\ASPIRIN\CAFFEINE
     Indication: CLUSTER HEADACHE
     Dosage: UNK
  3. EXCEDRIN [Suspect]
     Active Substance: ACETAMINOPHEN\ASPIRIN\CAFFEINE
     Indication: TENSION HEADACHE
     Dosage: UNK
  4. EXCEDRIN [Suspect]
     Active Substance: ACETAMINOPHEN\ASPIRIN\CAFFEINE
     Indication: MIGRAINE
  5. EXCEDRIN TENSION HEADACHE [Suspect]
     Active Substance: ACETAMINOPHEN\CAFFEINE
     Indication: TENSION HEADACHE
     Dosage: UNK
  6. EXCEDRIN TENSION HEADACHE [Suspect]
     Active Substance: ACETAMINOPHEN\CAFFEINE
     Dosage: UNK

REACTIONS (12)
  - Drug ineffective for unapproved indication [Unknown]
  - Gingival discolouration [Unknown]
  - Pharyngeal disorder [Recovered/Resolved]
  - Drug ineffective [Unknown]
  - Dyspepsia [Unknown]
  - Oral mucosal discolouration [Recovered/Resolved]
  - Product complaint [Unknown]
  - Hot flush [Unknown]
  - Faeces discoloured [Unknown]
  - Tongue discolouration [Recovered/Resolved]
  - Product use in unapproved indication [Unknown]
  - Tooth discolouration [Recovered/Resolved]
